FAERS Safety Report 9886777 (Version 2)
Quarter: 2014Q3

REPORT INFORMATION
  Report Type: Report from Study
  Country: AU (occurrence: AU)
  Receive Date: 20140210
  Receipt Date: 20140706
  Transmission Date: 20150326
  Serious: Yes (Other)
  Sender: FDA-Public Use
  Company Number: PHHY2014AU016221

PATIENT
  Age: 82 Year
  Sex: Male

DRUGS (4)
  1. ACLASTA [Suspect]
     Active Substance: ZOLEDRONIC ACID
     Dosage: 5 MG, UNK
     Route: 042
     Dates: start: 20130211
  2. REANDRON [Concomitant]
     Active Substance: TESTOSTERONE
     Dosage: UNK UKN, UNK
     Dates: start: 20120223
  3. ACLASTA [Suspect]
     Active Substance: ZOLEDRONIC ACID
     Dosage: 5 MG, UNK
     Route: 042
     Dates: start: 20120130
  4. REANDRON [Concomitant]
     Active Substance: TESTOSTERONE
     Dosage: UNK UKN, UNK
     Dates: start: 20121119

REACTIONS (5)
  - Haemorrhoids [Unknown]
  - Bone disorder [Unknown]
  - Anxiety [Unknown]
  - Osteomyelitis [Unknown]
  - Diverticulitis [Unknown]

NARRATIVE: CASE EVENT DATE: 20120313
